FAERS Safety Report 4682156-9 (Version None)
Quarter: 2005Q2

REPORT INFORMATION
  Report Type: 
  Country: None (occurrence: None)
  Receive Date: 20050602
  Receipt Date: 20040528
  Transmission Date: 20051028
  Serious: Yes (Death)
  Sender: FDA-Public Use
  Company Number: 369650

PATIENT
  Age: 49 Year
  Sex: Male
  Weight: 66.2 kg

DRUGS (1)
  1. LARIAM [Suspect]
     Indication: MALARIA PROPHYLAXIS
     Dosage: ORAL
     Route: 048
     Dates: start: 20000915

REACTIONS (16)
  - ABNORMAL DREAMS [None]
  - AGITATION [None]
  - COMMUNICATION DISORDER [None]
  - COMPLETED SUICIDE [None]
  - DISORIENTATION [None]
  - EMOTIONAL DISTRESS [None]
  - FATIGUE [None]
  - FEAR [None]
  - HOSTILITY [None]
  - MEMORY IMPAIRMENT [None]
  - MOOD SWINGS [None]
  - SELF ESTEEM DECREASED [None]
  - SLEEP APNOEA SYNDROME [None]
  - SPEECH DISORDER [None]
  - TINNITUS [None]
  - WOUND [None]
